FAERS Safety Report 7308413-5 (Version None)
Quarter: 2011Q1

REPORT INFORMATION
  Report Type: 
  Country: None (occurrence: None)
  Receive Date: 20110211
  Receipt Date: 20110110
  Transmission Date: 20110831
  Serious: Yes (Life-Threatening, Hospitalization)
  Sender: FDA-Public Use
  Company Number: LEO-2011-00147

PATIENT
  Age: 63 Year
  Sex: Male

DRUGS (3)
  1. WARFARIN SODIUM [Suspect]
     Indication: EMBOLISM VENOUS
     Dosage: 5 MG (5 MG,1 IN 1 D),ORAL
     Route: 048
     Dates: start: 20101213, end: 20110107
  2. LANSOPRAZOLE [Concomitant]
  3. INNOHEP [Suspect]
     Indication: EMBOLISM VENOUS
     Dosage: 18000 IU (18000 IU,1 IN 1 D),SUBCUTANEOUS
     Route: 058
     Dates: start: 20101213, end: 20101222

REACTIONS (4)
  - DYSPHAGIA [None]
  - OBSTRUCTION [None]
  - TUMOUR HAEMORRHAGE [None]
  - VOMITING [None]
